FAERS Safety Report 9797748 (Version 3)
Quarter: 2014Q1

REPORT INFORMATION
  Report Type: Spontaneous
  Country: US (occurrence: US)
  Receive Date: 20140106
  Receipt Date: 20140211
  Transmission Date: 20141002
  Serious: No
  Sender: FDA-Public Use
  Company Number: US-009507513-1401USA000972

PATIENT
  Sex: Male

DRUGS (2)
  1. PEGINTRON [Suspect]
     Dosage: 150
     Dates: start: 2004
  2. PHENOBARBITAL [Concomitant]

REACTIONS (1)
  - Immune system disorder [Unknown]
